FAERS Safety Report 7500427-5 (Version None)
Quarter: 2011Q2

REPORT INFORMATION
  Report Type: 
  Country: None (occurrence: None)
  Receive Date: 20110524
  Receipt Date: 20110411
  Transmission Date: 20111010
  Serious: No
  Sender: FDA-Public Use
  Company Number: US-BRISTOL-MYERS SQUIBB COMPANY-15602196

PATIENT
  Age: 66 Year
  Sex: Female
  Weight: 80 kg

DRUGS (12)
  1. LANTUS [Concomitant]
     Dosage: 1DF=28 UNITS
  2. LASIX [Concomitant]
  3. HUMALOG [Concomitant]
  4. METFORMIN HCL [Concomitant]
  5. ONGLYZA [Suspect]
     Dates: start: 20110211, end: 20110101
  6. PROVENTIL [Concomitant]
  7. BYETTA [Concomitant]
  8. PREMARIN [Concomitant]
  9. ALLOPURINOL [Concomitant]
  10. K-DUR [Concomitant]
  11. LISINOPRIL [Concomitant]
  12. ASPIRIN [Concomitant]
     Dosage: 1DF=1TABLET A DAY.

REACTIONS (4)
  - DRY MOUTH [None]
  - URTICARIA [None]
  - DIZZINESS [None]
  - CONSTIPATION [None]
